FAERS Safety Report 5650614-6 (Version None)
Quarter: 2008Q1

REPORT INFORMATION
  Report Type: 
  Country: None (occurrence: None)
  Receive Date: 20080304
  Receipt Date: 20080304
  Transmission Date: 20080703
  Serious: Yes (Hospitalization)
  Sender: FDA-Public Use
  Company Number: None

PATIENT
  Sex: Male
  Weight: 33.1126 kg

DRUGS (5)
  1. TAMIFLU [Suspect]
     Indication: INFLUENZA
     Dosage: 5 ML -1 TEASPOON- TWICE DAILY PO (DURATION: ONE DOSE GIVEN)
     Route: 048
     Dates: start: 20080225, end: 20080225
  2. SINGULAIR [Concomitant]
  3. FEXOFENADINE HCL [Concomitant]
  4. AZYTHROMYCIN [Concomitant]
  5. CHILDREN'S MOTRIN [Concomitant]

REACTIONS (10)
  - ABNORMAL BEHAVIOUR [None]
  - BRONCHITIS [None]
  - CONFUSIONAL STATE [None]
  - DEHYDRATION [None]
  - DIARRHOEA [None]
  - INFLUENZA [None]
  - MUSCLE TWITCHING [None]
  - PHARYNGITIS STREPTOCOCCAL [None]
  - SPEECH DISORDER [None]
  - UNRESPONSIVE TO STIMULI [None]
